FAERS Safety Report 11630429 (Version 1)
Quarter: 2015Q4

REPORT INFORMATION
  Report Type: Report from Study
  Country: IE (occurrence: IE)
  Receive Date: 20151014
  Receipt Date: 20151014
  Transmission Date: 20160304
  Serious: Yes (Other)
  Sender: FDA-Public Use
  Company Number: PHFR2015IE007548

PATIENT
  Age: 51 Year
  Sex: Male

DRUGS (1)
  1. GILENYA [Suspect]
     Active Substance: FINGOLIMOD HYDROCHLORIDE
     Indication: RELAPSING-REMITTING MULTIPLE SCLEROSIS
     Dosage: 0.5 MG, UNK
     Route: 048
     Dates: start: 20150903

REACTIONS (11)
  - Pallor [Unknown]
  - Urinary incontinence [Unknown]
  - Narcolepsy [Unknown]
  - Dizziness [Unknown]
  - Migraine [Unknown]
  - Fall [Unknown]
  - Peripheral coldness [Unknown]
  - Vertigo [Unknown]
  - Hypotension [Unknown]
  - Gait disturbance [Unknown]
  - Somnolence [Unknown]

NARRATIVE: CASE EVENT DATE: 20151007
